FAERS Safety Report 6272925-6 (Version None)
Quarter: 2009Q3

REPORT INFORMATION
  Report Type: 
  Country: None (occurrence: None)
  Receive Date: 20090717
  Receipt Date: 20090707
  Transmission Date: 20100115
  Serious: Yes (Hospitalization, Other)
  Sender: FDA-Public Use
  Company Number: JP-PFIZER INC-2009225854

PATIENT
  Age: 59 Year

DRUGS (10)
  1. CHAMPIX [Suspect]
     Indication: SMOKING CESSATION THERAPY
     Dosage: 2 MG/DAY
     Route: 048
     Dates: start: 20090401, end: 20090604
  2. LIPITOR [Concomitant]
     Dosage: UNK
     Route: 048
     Dates: start: 20070416
  3. CERCINE [Concomitant]
     Dosage: UNK
     Route: 048
     Dates: start: 20090109
  4. BAKUMONDOUTO [Concomitant]
     Route: 048
     Dates: start: 20090403, end: 20090408
  5. PELEX [Concomitant]
     Route: 048
     Dates: start: 20090501, end: 20090506
  6. ALESION [Concomitant]
     Route: 048
     Dates: start: 20090519, end: 20090524
  7. ALL OTHER THERAPEUTIC PRODUCTS [Concomitant]
     Route: 048
     Dates: start: 20090519, end: 20090524
  8. MEDICON [Concomitant]
     Route: 048
     Dates: start: 20090519, end: 20090524
  9. MUCODYNE [Concomitant]
     Route: 048
     Dates: start: 20090519, end: 20090524
  10. CALONAL [Concomitant]
     Route: 048
     Dates: start: 20090519, end: 20090524

REACTIONS (14)
  - ALANINE AMINOTRANSFERASE INCREASED [None]
  - ASPARTATE AMINOTRANSFERASE INCREASED [None]
  - BLOOD ALKALINE PHOSPHATASE INCREASED [None]
  - BLOOD BILIRUBIN INCREASED [None]
  - BLOOD LACTATE DEHYDROGENASE INCREASED [None]
  - COUGH [None]
  - DIARRHOEA [None]
  - GAMMA-GLUTAMYLTRANSFERASE INCREASED [None]
  - HEADACHE [None]
  - MALAISE [None]
  - RHINITIS ALLERGIC [None]
  - RHINORRHOEA [None]
  - SPINAL CORD INJURY [None]
  - UPPER RESPIRATORY TRACT INFLAMMATION [None]
